FAERS Safety Report 20537314 (Version 4)
Quarter: 2022Q2

REPORT INFORMATION
  Report Type: Spontaneous
  Country: FR (occurrence: FR)
  Receive Date: 20220302
  Receipt Date: 20220421
  Transmission Date: 20220720
  Serious: Yes (Hospitalization)
  Sender: FDA-Public Use
  Company Number: None

PATIENT
  Age: 23 Year
  Sex: Female

DRUGS (13)
  1. CLONAZEPAM [Suspect]
     Active Substance: CLONAZEPAM
     Indication: Anhedonia
     Dosage: 3 A 4 MG/J
     Route: 048
  2. CLONAZEPAM [Suspect]
     Active Substance: CLONAZEPAM
     Indication: Boredom
  3. CLONAZEPAM [Suspect]
     Active Substance: CLONAZEPAM
     Indication: Anxiolytic therapy
  4. BROMAZEPAM [Suspect]
     Active Substance: BROMAZEPAM
     Indication: Anxiolytic therapy
     Dosage: 15 MG, QD
     Route: 048
  5. BROMAZEPAM [Suspect]
     Active Substance: BROMAZEPAM
     Indication: Boredom
  6. BROMAZEPAM [Suspect]
     Active Substance: BROMAZEPAM
     Indication: Anhedonia
  7. KETAMINE [Suspect]
     Active Substance: KETAMINE
     Indication: Product used for unknown indication
     Dosage: 1 TO 2 TIMES A MONTH
     Route: 065
  8. XANAX [Suspect]
     Active Substance: ALPRAZOLAM
     Indication: Anxiolytic therapy
     Dosage: UNK (3 YEARS)
     Route: 048
  9. XANAX [Suspect]
     Active Substance: ALPRAZOLAM
     Indication: Boredom
  10. XANAX [Suspect]
     Active Substance: ALPRAZOLAM
     Indication: Anhedonia
  11. LYSERGIDE [Suspect]
     Active Substance: LYSERGIDE
     Indication: Product used for unknown indication
     Dosage: 5 DOSAGE FORM, QMO (5 BLOTTERS)
     Route: 048
  12. CANNABIS SATIVA SUBSP. INDICA TOP [Suspect]
     Active Substance: CANNABIS SATIVA SUBSP. INDICA TOP
     Indication: Product used for unknown indication
     Dosage: 10 DOSAGE FORM, QD (10 JOINTS/DAY)
     Route: 055
  13. CAFFEINE [Suspect]
     Active Substance: CAFFEINE
     Indication: Fatigue
     Dosage: 200 MG, QD
     Route: 048

REACTIONS (5)
  - Drug use disorder [Not Recovered/Not Resolved]
  - Product use in unapproved indication [Not Recovered/Not Resolved]
  - Drug dependence [Unknown]
  - Cognitive disorder [Unknown]
  - Antisocial behaviour [Unknown]
